FAERS Safety Report 4810439-8 (Version None)
Quarter: 2005Q4

REPORT INFORMATION
  Report Type: 
  Country: None (occurrence: None)
  Receive Date: 20051024
  Receipt Date: 20051017
  Transmission Date: 20060501
  Serious: Yes (Disabling, Other)
  Sender: FDA-Public Use
  Company Number: 2005008379

PATIENT
  Sex: Female
  Weight: 90.7194 kg

DRUGS (11)
  1. NEURONTIN [Suspect]
     Indication: NEUROPATHY
     Dosage: 100 MG (100 MG, 1 IN 1 D)
  2. LYRICA [Suspect]
     Indication: NEUROPATHY
     Dosage: 200 MG (100 MG, 2 IN 1 D), ORAL
     Route: 048
     Dates: start: 20050101
  3. OXYCONTIN [Concomitant]
  4. LORAZEPAM [Concomitant]
  5. LEXAPRO [Concomitant]
  6. ATENOLOL [Concomitant]
  7. ACIPHEX [Concomitant]
  8. THYROID TAB [Concomitant]
  9. LIDODERM PATCH (LIDOCAINE HYDROCHLORIDE) [Concomitant]
  10. TRAZODONE HCL [Concomitant]
  11. REGLAN [Concomitant]

REACTIONS (16)
  - ANEURYSM [None]
  - ASTHENIA [None]
  - BLOOD PRESSURE ABNORMAL [None]
  - CONDITION AGGRAVATED [None]
  - DRUG INEFFECTIVE [None]
  - FATIGUE [None]
  - FEELING ABNORMAL [None]
  - GASTROENTERITIS VIRAL [None]
  - MOVEMENT DISORDER [None]
  - NEUROPATHY [None]
  - ORAL INTAKE REDUCED [None]
  - PAIN [None]
  - SOMNOLENCE [None]
  - THERAPY NON-RESPONDER [None]
  - VISUAL DISTURBANCE [None]
  - VOMITING [None]
